FAERS Safety Report 9692890 (Version 1)
Quarter: 2013Q4

REPORT INFORMATION
  Report Type: Spontaneous
  Country: FR (occurrence: FR)
  Receive Date: 20131118
  Receipt Date: 20131118
  Transmission Date: 20140711
  Serious: Yes (Death, Hospitalization)
  Sender: FDA-Public Use
  Company Number: FR-ASTRAZENECA-2013SE84357

PATIENT
  Age: 21608 Day
  Sex: Male

DRUGS (18)
  1. INEXIUM [Suspect]
     Route: 042
     Dates: start: 201302, end: 20130212
  2. ZYVOXID [Suspect]
     Route: 042
     Dates: start: 20130210, end: 20130212
  3. TAZOCILLINE [Concomitant]
     Indication: LEUKOCYTURIA
     Dosage: 4 G/500 MG X 2/DAY
     Dates: start: 20130128, end: 20130203
  4. TAZOCILLINE [Concomitant]
     Indication: LEUKOCYTURIA
     Dates: start: 20130211, end: 20130212
  5. TAZOCILLINE [Concomitant]
     Indication: LEUKOCYTURIA
     Dates: start: 20130214, end: 20130214
  6. GARDENAL [Concomitant]
     Indication: CONVULSION
     Dates: start: 20130203, end: 20130203
  7. KEPPRA [Concomitant]
     Indication: CONVULSION
     Dates: start: 20130204, end: 20130207
  8. KEPPRA [Concomitant]
     Indication: CONVULSION
     Dates: start: 20130212
  9. PARIET [Concomitant]
     Dates: end: 20130204
  10. CIFLOX [Concomitant]
     Indication: LEUKOCYTURIA
     Dosage: 10 000 000/ML
     Dates: start: 20130128, end: 201302
  11. CORTANCYL [Concomitant]
  12. ACUPAN [Concomitant]
  13. TRAMADOL LP [Concomitant]
  14. DAFALGAN [Concomitant]
  15. KARDEGIC [Concomitant]
  16. LASIX [Concomitant]
  17. RENAGEL [Concomitant]
  18. HEPARIN [Concomitant]
     Dosage: 12000UI/JOUR IVSE

REACTIONS (9)
  - Haemoptysis [Recovered/Resolved]
  - Inflammation [Unknown]
  - Altered state of consciousness [Unknown]
  - Clonus [Unknown]
  - Brain injury [Unknown]
  - Septic shock [Fatal]
  - Pancytopenia [Recovered/Resolved]
  - Febrile neutropenia [Unknown]
  - Therapy cessation [Unknown]
